FAERS Safety Report 24232697 (Version 4)
Quarter: 2024Q4

REPORT INFORMATION
  Report Type: Spontaneous
  Country: US (occurrence: US)
  Receive Date: 20240821
  Receipt Date: 20241031
  Transmission Date: 20250114
  Serious: No
  Sender: PFIZER
  Company Number: US-PFIZER INC-202400237019

PATIENT
  Age: 12 Year
  Sex: Male
  Weight: 61.235 kg

DRUGS (1)
  1. GENOTROPIN [Suspect]
     Active Substance: SOMATROPIN
     Indication: Prader-Willi syndrome
     Dosage: 6 DAYS WEEK INJECTION

REACTIONS (4)
  - Intentional device misuse [Unknown]
  - Drug administered in wrong device [Unknown]
  - Overdose [Unknown]
  - Product dose omission issue [Unknown]
